FAERS Safety Report 21587968 (Version 4)
Quarter: 2023Q4

REPORT INFORMATION
  Report Type: Report from Study
  Country: US (occurrence: US)
  Receive Date: 20221114
  Receipt Date: 20231023
  Transmission Date: 20240110
  Serious: Yes (Hospitalization)
  Sender: FDA-Public Use
  Company Number: US-ARGENX-2022-ARGX-US002411

PATIENT

DRUGS (1)
  1. VYVGART [Suspect]
     Active Substance: EFGARTIGIMOD ALFA-FCAB
     Indication: Myasthenia gravis
     Dosage: 10 MG/KG
     Route: 042
     Dates: start: 20221103

REACTIONS (6)
  - Spinal fusion surgery [Unknown]
  - Muscular weakness [Unknown]
  - Drug effect less than expected [Unknown]
  - Post herpetic neuralgia [Unknown]
  - Fall [Unknown]
  - Diabetic foot [Unknown]

NARRATIVE: CASE EVENT DATE: 20230901
